FAERS Safety Report 5308941-8 (Version None)
Quarter: 2007Q2

REPORT INFORMATION
  Report Type: 
  Country: None (occurrence: None)
  Receive Date: 20070426
  Receipt Date: 20070416
  Transmission Date: 20071010
  Serious: Yes (Other)
  Sender: FDA-Public Use
  Company Number: BR-PFIZER INC-2007018737

PATIENT
  Sex: Female

DRUGS (1)
  1. CELEBRA [Suspect]
     Indication: TENDONITIS
     Route: 048
     Dates: start: 20070227, end: 20070228

REACTIONS (4)
  - DIZZINESS [None]
  - MALAISE [None]
  - PRURITUS [None]
  - SKIN HAEMORRHAGE [None]
